FAERS Safety Report 7559819-0 (Version None)
Quarter: 2011Q2

REPORT INFORMATION
  Report Type: 
  Country: None (occurrence: None)
  Receive Date: 20110621
  Receipt Date: 20110607
  Transmission Date: 20111010
  Serious: Yes (Hospitalization)
  Sender: FDA-Public Use
  Company Number: US-ROCHE-783633

PATIENT
  Sex: Female

DRUGS (3)
  1. CARBOPLATIN [Suspect]
     Dosage: 6AUC IP OVER 1 DAY
     Route: 042
     Dates: start: 20100809
  2. BEVACIZUMAB [Suspect]
     Dosage: OVER 30-90 MIN ON DAY 1
     Route: 042
     Dates: start: 20100809
  3. PACLITAXEL [Suspect]
     Dosage: OVER 1 HR ON DAYS 1, 8 + 15.
     Route: 042
     Dates: start: 20100809

REACTIONS (6)
  - HYPERTENSION [None]
  - EPISTAXIS [None]
  - NAUSEA [None]
  - CONVULSION [None]
  - DIZZINESS [None]
  - HEADACHE [None]
